FAERS Safety Report 4867097-6 (Version None)
Quarter: 2005Q4

REPORT INFORMATION
  Report Type: 
  Country: None (occurrence: None)
  Receive Date: 20051222
  Receipt Date: 20051213
  Transmission Date: 20060501
  Serious: Yes (Hospitalization, Other)
  Sender: FDA-Public Use
  Company Number: HQWYE997714DEC05

PATIENT
  Age: 78 Year
  Sex: Male
  Weight: 95.34 kg

DRUGS (9)
  1. MYLOTARG [Suspect]
     Indication: ACUTE MYELOID LEUKAEMIA
     Dosage: SEE IMAGE
     Route: 042
     Dates: start: 20050707, end: 20050707
  2. MYLOTARG [Suspect]
     Indication: ACUTE MYELOID LEUKAEMIA
     Dosage: SEE IMAGE
     Route: 042
     Dates: start: 20050723, end: 20050723
  3. MYLOTARG [Suspect]
     Indication: ACUTE MYELOID LEUKAEMIA
     Dosage: SEE IMAGE
     Route: 042
     Dates: start: 20050913, end: 20050913
  4. AZACITIDINE (AZACITIDINE, ) [Suspect]
     Indication: ACUTE MYELOID LEUKAEMIA
     Dosage: SEE IMAGE
     Route: 058
     Dates: start: 20050629, end: 20050706
  5. AZACITIDINE (AZACITIDINE, ) [Suspect]
     Indication: ACUTE MYELOID LEUKAEMIA
     Dosage: SEE IMAGE
     Route: 058
     Dates: start: 20050715, end: 20050722
  6. AZACITIDINE (AZACITIDINE, ) [Suspect]
     Indication: ACUTE MYELOID LEUKAEMIA
     Dosage: SEE IMAGE
     Route: 058
     Dates: start: 20050906, end: 20050912
  7. ACETAMINOPHEN [Concomitant]
  8. LEVOTHYROXINE SODIUM [Concomitant]
  9. DOCUSATE SODIUM (DOCUSATE SODIUM) [Concomitant]

REACTIONS (7)
  - BILIARY DYSKINESIA [None]
  - CAECITIS [None]
  - CONSTIPATION [None]
  - NEPHROLITHIASIS [None]
  - PAIN [None]
  - RECTAL TENESMUS [None]
  - RENAL CYST [None]
